FAERS Safety Report 7486859-2 (Version None)
Quarter: 2011Q2

REPORT INFORMATION
  Report Type: 
  Country: None (occurrence: None)
  Receive Date: 20110517
  Receipt Date: 20110510
  Transmission Date: 20111010
  Serious: Yes (Hospitalization)
  Sender: FDA-Public Use
  Company Number: US-US-EMD SERONO, INC.-7023938

PATIENT
  Sex: Female

DRUGS (3)
  1. REBIF [Suspect]
     Route: 058
     Dates: start: 20100823, end: 20110201
  2. REBIF [Suspect]
     Route: 058
     Dates: start: 20110201
  3. REBIF [Suspect]
     Indication: MULTIPLE SCLEROSIS
     Route: 058
     Dates: start: 20091201, end: 20100501

REACTIONS (2)
  - DRUG HYPERSENSITIVITY [None]
  - LIMB DISCOMFORT [None]
